FAERS Safety Report 12401166 (Version 1)
Quarter: 2016Q2

REPORT INFORMATION
  Report Type: Spontaneous
  Country: US (occurrence: US)
  Receive Date: 20160525
  Receipt Date: 20160525
  Transmission Date: 20160815
  Serious: No
  Sender: FDA-Public Use
  Company Number: US-SA-2015SA063267

PATIENT
  Age: 61 Year
  Sex: Male

DRUGS (3)
  1. LANTUS SOLOSTAR [Suspect]
     Active Substance: INSULIN GLARGINE
     Indication: TYPE 2 DIABETES MELLITUS
     Dosage: 20U QAM + 40U QHS
     Route: 065
     Dates: start: 2012
  2. NOVOLOG [Concomitant]
     Active Substance: INSULIN ASPART
     Dosage: DOSE:12 UNIT(S)
  3. SOLOSTAR [Concomitant]
     Active Substance: DEVICE
     Dates: start: 2012

REACTIONS (3)
  - Injury associated with device [Unknown]
  - Eye disorder [Unknown]
  - Drug administration error [Unknown]

NARRATIVE: CASE EVENT DATE: 2012
